FAERS Safety Report 7110243-4 (Version None)
Quarter: 2010Q4

REPORT INFORMATION
  Report Type: 
  Country: None (occurrence: None)
  Receive Date: 20101118
  Receipt Date: 20101112
  Transmission Date: 20110411
  Serious: Yes (Other)
  Sender: FDA-Public Use
  Company Number: HU-BAYER-201045920GPV

PATIENT
  Age: 36 Year
  Sex: Male

DRUGS (1)
  1. ULTRAVIST 300 [Suspect]
     Indication: COMPUTERISED TOMOGRAM ABDOMEN
     Route: 042
     Dates: start: 20101029, end: 20101029

REACTIONS (8)
  - CONTRAST MEDIA REACTION [None]
  - FACE INJURY [None]
  - FRACTURE [None]
  - HYPERTENSION [None]
  - PARAESTHESIA [None]
  - SYNCOPE [None]
  - THIRST [None]
  - URTICARIA [None]
